FAERS Safety Report 24274699 (Version 3)
Quarter: 2024Q4

REPORT INFORMATION
  Report Type: Spontaneous
  Country: US (occurrence: US)
  Receive Date: 20240902
  Receipt Date: 20241129
  Transmission Date: 20250114
  Serious: No
  Sender: PFIZER
  Company Number: US-PFIZER INC-202400243340

PATIENT
  Age: 12 Year
  Sex: Male

DRUGS (1)
  1. GENOTROPIN [Suspect]
     Active Substance: SOMATROPIN
     Dosage: 1.6MG/SIX DAYS A WEEK SQ
     Route: 058

REACTIONS (3)
  - Device issue [Unknown]
  - Device leakage [Unknown]
  - Device physical property issue [Unknown]
